FAERS Safety Report 18557789 (Version 1)
Quarter: 2020Q4

REPORT INFORMATION
  Report Type: Other
  Country: US (occurrence: US)
  Receive Date: 20201130
  Receipt Date: 20201130
  Transmission Date: 20210114
  Serious: Yes (Death)
  Sender: FDA-Public Use
  Company Number: US-ROCHE-2721379

PATIENT

DRUGS (4)
  1. CGC-11047. [Suspect]
     Active Substance: CGC-11047
     Indication: LYMPHOMA
  2. BEVACIZUMAB. [Suspect]
     Active Substance: BEVACIZUMAB
     Indication: NEOPLASM
     Route: 042
  3. BEVACIZUMAB. [Suspect]
     Active Substance: BEVACIZUMAB
     Indication: LYMPHOMA
  4. CGC-11047. [Suspect]
     Active Substance: CGC-11047
     Indication: NEOPLASM
     Route: 042

REACTIONS (1)
  - Cardio-respiratory arrest [Fatal]
